FAERS Safety Report 12850970 (Version 1)
Quarter: 2016Q4

REPORT INFORMATION
  Report Type: Spontaneous
  Country: CH (occurrence: CH)
  Receive Date: 20161015
  Receipt Date: 20161015
  Transmission Date: 20170207
  Serious: Yes (Hospitalization)
  Sender: FDA-Public Use
  Company Number: CH-AMGEN-CHESP2016140850

PATIENT
  Age: 57 Year
  Sex: Female

DRUGS (12)
  1. PREDNISON [Concomitant]
     Active Substance: PREDNISONE
     Dosage: 3 - 5 MG /DAY
     Dates: start: 20160517, end: 20160810
  2. PANTOZOL [Concomitant]
     Active Substance: PANTOPRAZOLE SODIUM
     Dosage: 40 MG, 1X/DAY (1-0-0)
     Dates: start: 201601
  3. KALCIPOS D3 [Concomitant]
     Dosage: UNK
     Dates: start: 20160628
  4. VOLTAREN [Concomitant]
     Active Substance: DICLOFENAC SODIUM
     Dosage: 75 MG, 2X/DAY (1-0-1)
     Dates: start: 20160115, end: 20160122
  5. DAFALGAN [Concomitant]
     Active Substance: ACETAMINOPHEN
     Dosage: AS NEEDED
  6. ARAVA [Suspect]
     Active Substance: LEFLUNOMIDE
     Indication: RHEUMATOID ARTHRITIS
     Dosage: 20 MG, 1X/DAY (1-0-0-0)
     Route: 065
     Dates: start: 20160210, end: 20160517
  7. ENBREL [Suspect]
     Active Substance: ETANERCEPT
     Indication: RHEUMATOID ARTHRITIS
     Dosage: 50 MG, WEEKLY
     Route: 058
     Dates: start: 20160628, end: 20160810
  8. VOLTAREN [Concomitant]
     Active Substance: DICLOFENAC SODIUM
     Dosage: AS NEEDED MAX. 2X/DAY
     Dates: start: 20160123
  9. METOJECT [Suspect]
     Active Substance: METHOTREXATE SODIUM
     Indication: RHEUMATOID ARTHRITIS
     Dosage: 10 MG, WEEKLY (ON FRIDAY)
     Route: 058
     Dates: start: 20160115, end: 20160129
  10. PREDNISON [Concomitant]
     Active Substance: PREDNISONE
     Indication: RHEUMATOID ARTHRITIS
     Dosage: 10 MG, 1X/DAY
     Dates: start: 20160210, end: 20160507
  11. ACIDUM FOLICUM [Concomitant]
     Active Substance: FOLIC ACID
     Dosage: 5 MG, WEEKLY, 1 TABL. 12 - 24 AFTER MTX
     Dates: start: 20160115, end: 20160129
  12. TRIMIPRAMIN [Concomitant]
     Active Substance: TRIMIPRAMINE MALEATE
     Dosage: 25 MG, 1X/DAY (0-0-0-1)
     Dates: start: 20160210

REACTIONS (1)
  - Acute myeloid leukaemia [Recovering/Resolving]

NARRATIVE: CASE EVENT DATE: 20160810
